FAERS Safety Report 9033446 (Version 1)
Quarter: 2013Q1

REPORT INFORMATION
  Report Type: Spontaneous
  Country: CA (occurrence: CA)
  Receive Date: 20130128
  Receipt Date: 20130128
  Transmission Date: 20140127
  Serious: Yes (Death)
  Sender: FDA-Public Use
  Company Number: CA-AMGEN-KDL322649

PATIENT
  Age: 86 Year
  Sex: Male

DRUGS (1)
  1. SENSIPAR [Suspect]
     Indication: RENAL FAILURE CHRONIC
     Dosage: UNK UNK, QD
     Dates: start: 20080101, end: 20081109

REACTIONS (1)
  - Myocardial infarction [Fatal]
